FAERS Safety Report 5591752-6 (Version None)
Quarter: 2008Q1

REPORT INFORMATION
  Report Type: 
  Country: None (occurrence: None)
  Receive Date: 20080115
  Receipt Date: 20080111
  Transmission Date: 20080703
  Serious: Yes (Other)
  Sender: FDA-Public Use
  Company Number: A0702757A

PATIENT
  Age: 78 Year
  Sex: Female

DRUGS (6)
  1. COREG [Suspect]
     Indication: HYPERTENSION
     Dosage: 3.125MG TWICE PER DAY
     Route: 048
     Dates: start: 20070925, end: 20080101
  2. DIOVAN [Suspect]
     Dates: start: 20071101, end: 20080101
  3. TYLENOL [Suspect]
  4. ATARAX [Concomitant]
  5. ATIVAN [Concomitant]
  6. INSULIN [Concomitant]

REACTIONS (3)
  - CONVULSION [None]
  - DRUG HYPERSENSITIVITY [None]
  - RASH PRURITIC [None]
